FAERS Safety Report 18308111 (Version 3)
Quarter: 2020Q3

REPORT INFORMATION
  Report Type: Spontaneous
  Country: ES (occurrence: ES)
  Receive Date: 20200924
  Receipt Date: 20200930
  Transmission Date: 20201103
  Serious: Yes (Other)
  Sender: FDA-Public Use
  Company Number: NVSC2020ES258432

PATIENT
  Age: 64 Year
  Sex: Male

DRUGS (6)
  1. HYDROXYCHLOROQUINE [Suspect]
     Active Substance: HYDROXYCHLOROQUINE
     Indication: COVID-19
     Dosage: 400 MG, BID (DAY 1)
     Route: 065
  2. TEICOPLANIN [Suspect]
     Active Substance: TEICOPLANIN
     Indication: COVID-19
     Dosage: UNK
     Route: 065
  3. HYDROXYCHLOROQUINE [Suspect]
     Active Substance: HYDROXYCHLOROQUINE
     Indication: COVID-19 PNEUMONIA
     Dosage: 200 MG, BID
     Route: 065
  4. TEICOPLANIN [Suspect]
     Active Substance: TEICOPLANIN
     Indication: COVID-19 PNEUMONIA
  5. LOPINAVIR/RITONAVIR [Suspect]
     Active Substance: LOPINAVIR\RITONAVIR
     Indication: COVID-19
     Dosage: 200 MG/50 MG, BID
     Route: 065
  6. LOPINAVIR/RITONAVIR [Suspect]
     Active Substance: LOPINAVIR\RITONAVIR
     Indication: COVID-19 PNEUMONIA

REACTIONS (13)
  - Skin oedema [Recovered/Resolved]
  - Rash erythematous [Recovered/Resolved]
  - Acute generalised exanthematous pustulosis [Unknown]
  - Extravasation blood [Recovered/Resolved]
  - Off label use [Unknown]
  - Product use in unapproved indication [Unknown]
  - Purpura [Recovered/Resolved]
  - Parakeratosis [Recovered/Resolved]
  - Acanthosis [Recovered/Resolved]
  - Erythema [Recovered/Resolved]
  - Eczema [Recovered/Resolved]
  - Rash pruritic [Recovered/Resolved]
  - Pustule [Recovered/Resolved]
